FAERS Safety Report 21590635 (Version 1)
Quarter: 2022Q4

REPORT INFORMATION
  Report Type: Report from Study
  Country: US (occurrence: US)
  Receive Date: 20221114
  Receipt Date: 20221114
  Transmission Date: 20230113
  Serious: No
  Sender: FDA-Public Use
  Company Number: US-ABBVIE-22K-163-4501492-00

PATIENT
  Sex: Female

DRUGS (1)
  1. HUMIRA [Suspect]
     Active Substance: ADALIMUMAB
     Indication: Rheumatoid arthritis
     Dosage: CITRATE FREE
     Route: 058

REACTIONS (17)
  - Fatigue [Recovering/Resolving]
  - Asthenia [Recovering/Resolving]
  - Peripheral swelling [Unknown]
  - Constipation [Recovering/Resolving]
  - Blepharospasm [Recovering/Resolving]
  - Arthralgia [Unknown]
  - Unevaluable event [Recovering/Resolving]
  - Diarrhoea [Recovering/Resolving]
  - Balance disorder [Recovering/Resolving]
  - Paraesthesia [Unknown]
  - Anger [Recovering/Resolving]
  - Skin laceration [Unknown]
  - Impaired healing [Recovering/Resolving]
  - Feeling abnormal [Unknown]
  - Swelling [Unknown]
  - Somnolence [Unknown]
  - Abnormal behaviour [Recovering/Resolving]
